FAERS Safety Report 6201872-0 (Version None)
Quarter: 2009Q2

REPORT INFORMATION
  Report Type: 
  Country: None (occurrence: None)
  Receive Date: 20090520
  Receipt Date: 20090508
  Transmission Date: 20091009
  Serious: Yes (Other)
  Sender: FDA-Public Use
  Company Number: 2008-184637-NL

PATIENT
  Age: 23 Year
  Sex: Female
  Weight: 65 kg

DRUGS (1)
  1. NUVARING [Suspect]
     Indication: CONTRACEPTION
     Dates: start: 20070301, end: 20080906

REACTIONS (3)
  - BLOOD HOMOCYSTEINE INCREASED [None]
  - IRON DEFICIENCY ANAEMIA [None]
  - VENA CAVA THROMBOSIS [None]
